FAERS Safety Report 25940710 (Version 1)
Quarter: 2025Q4

REPORT INFORMATION
  Report Type: Spontaneous
  Country: US (occurrence: US)
  Receive Date: 20251020
  Receipt Date: 20251020
  Transmission Date: 20260117
  Serious: No
  Sender: ROCHE
  Company Number: US-ROCHE-10000405464

PATIENT
  Age: 18 Year
  Sex: Female

DRUGS (1)
  1. VEMURAFENIB [Suspect]
     Active Substance: VEMURAFENIB
     Indication: Lymphangioma
     Route: 065

REACTIONS (4)
  - Nausea [Unknown]
  - Weight decreased [Unknown]
  - Myalgia [Unknown]
  - Joint contracture [Unknown]
